FAERS Safety Report 25612971 (Version 2)
Quarter: 2025Q3

REPORT INFORMATION
  Report Type: Report from Study
  Country: BR (occurrence: BR)
  Receive Date: 20250728
  Receipt Date: 20250812
  Transmission Date: 20251021
  Serious: Yes (Hospitalization, Other)
  Sender: BIOGEN
  Company Number: BR-BIOGEN-2025BI01311941

PATIENT
  Sex: Male

DRUGS (2)
  1. TYSABRI [Suspect]
     Active Substance: NATALIZUMAB
     Indication: Primary progressive multiple sclerosis
     Route: 050
     Dates: start: 202404
  2. TYSABRI [Suspect]
     Active Substance: NATALIZUMAB
     Route: 050
     Dates: start: 202506, end: 202507

REACTIONS (2)
  - Multiple sclerosis relapse [Unknown]
  - Brain oedema [Unknown]
